FAERS Safety Report 6422146-9 (Version None)
Quarter: 2009Q4

REPORT INFORMATION
  Report Type: 
  Country: None (occurrence: None)
  Receive Date: 20091030
  Receipt Date: 20091026
  Transmission Date: 20100525
  Serious: Yes (Hospitalization)
  Sender: FDA-Public Use
  Company Number: US-WYE-H11838109

PATIENT
  Age: 62 Year
  Sex: Male

DRUGS (5)
  1. TEMSIROLIMUS [Suspect]
     Indication: BILE DUCT CANCER
     Route: 042
     Dates: start: 20091012, end: 20091012
  2. TEMSIROLIMUS [Suspect]
     Indication: METASTASIS
  3. COUMADIN [Concomitant]
     Dosage: NOT PROVIDED
     Route: 048
     Dates: end: 20091019
  4. DOCETAXEL [Suspect]
     Indication: BILE DUCT CANCER
     Route: 042
     Dates: start: 20091012, end: 20091012
  5. DOCETAXEL [Suspect]
     Indication: METASTASIS

REACTIONS (4)
  - FEBRILE NEUTROPENIA [None]
  - PLATELET COUNT DECREASED [None]
  - UPPER RESPIRATORY TRACT INFECTION [None]
  - WHITE BLOOD CELL COUNT DECREASED [None]
